FAERS Safety Report 19584052 (Version 1)
Quarter: 2021Q3

REPORT INFORMATION
  Report Type: Spontaneous
  Country: JP (occurrence: JP)
  Receive Date: 20210720
  Receipt Date: 20210720
  Transmission Date: 20211014
  Serious: Yes (Other)
  Sender: FDA-Public Use
  Company Number: JP-ELI_LILLY_AND_COMPANY-JP202107007475

PATIENT
  Age: 68 Year
  Sex: Male

DRUGS (4)
  1. GEMCITABINE. [Concomitant]
     Active Substance: GEMCITABINE
     Indication: SQUAMOUS CELL CARCINOMA
  2. CISPLATIN. [Concomitant]
     Active Substance: CISPLATIN
     Indication: SQUAMOUS CELL CARCINOMA
  3. NECITUMUMAB [Suspect]
     Active Substance: NECITUMUMAB
     Indication: SQUAMOUS CELL CARCINOMA
     Dosage: UNK, OTHER
     Route: 041
  4. LIXIANA [Concomitant]
     Active Substance: EDOXABAN TOSYLATE
     Indication: FIBRIN D DIMER INCREASED

REACTIONS (4)
  - Hypomagnesaemia [Unknown]
  - Dermatitis acneiform [Unknown]
  - Platelet count decreased [Unknown]
  - White blood cell count decreased [Unknown]
